FAERS Safety Report 9559250 (Version 1)
Quarter: 2013Q3

REPORT INFORMATION
  Report Type: Spontaneous
  Country: US (occurrence: US)
  Receive Date: 20130927
  Receipt Date: 20130927
  Transmission Date: 20140515
  Serious: Yes (Life-Threatening)
  Sender: FDA-Public Use
  Company Number: PHEH2013US020083

PATIENT
  Sex: Male

DRUGS (1)
  1. EXELON PATCH [Suspect]
     Dosage: 4.6 MG, DAILY (1 PER DAY 24 HRS)
     Route: 062

REACTIONS (2)
  - Abdominal discomfort [Unknown]
  - Application site erythema [Unknown]
